FAERS Safety Report 5956009-X (Version None)
Quarter: 2008Q4

REPORT INFORMATION
  Report Type: 
  Country: None (occurrence: None)
  Receive Date: 20081112
  Receipt Date: 20081029
  Transmission Date: 20090506
  Serious: Yes (Other)
  Sender: FDA-Public Use
  Company Number: 230336K08USA

PATIENT
  Age: 42 Year
  Sex: Male

DRUGS (1)
  1. REBIF [Suspect]
     Indication: MULTIPLE SCLEROSIS
     Dosage: 44 MCG, 3 IN 1 WEEKS, SUBCUTANEOUS
     Route: 058
     Dates: start: 20080821, end: 20081005

REACTIONS (6)
  - DIABETES MELLITUS [None]
  - FATIGUE [None]
  - HEADACHE [None]
  - PAIN [None]
  - THIRST [None]
  - VISION BLURRED [None]
